FAERS Safety Report 8837518 (Version 1)
Quarter: 2012Q4

REPORT INFORMATION
  Report Type: 
  Country: US (occurrence: US)
  Receive Date: 20121012
  Receipt Date: 20121012
  Transmission Date: 20130627
  Serious: No
  Sender: FDA-Public Use
  Company Number: US-PFIZER INC-2012252119

PATIENT
  Age: 80 Year
  Sex: Male
  Weight: 80.27 kg

DRUGS (1)
  1. ATORVASTATIN CALCIUM [Suspect]
     Indication: BLOOD CHOLESTEROL INCREASED
     Dosage: 20 mg, daily
     Dates: start: 2012

REACTIONS (2)
  - Drug ineffective [Unknown]
  - Headache [Unknown]
